FAERS Safety Report 5528159-3 (Version None)
Quarter: 2007Q4

REPORT INFORMATION
  Report Type: 
  Country: None (occurrence: None)
  Receive Date: 20071128
  Receipt Date: 20071119
  Transmission Date: 20080405
  Serious: Yes (Other)
  Sender: FDA-Public Use
  Company Number: US-PFIZER INC-2007046222

PATIENT
  Sex: Female

DRUGS (11)
  1. BEXTRA [Suspect]
     Indication: ARTHRITIS
     Dates: start: 20030328, end: 20050511
  2. ESTRADIOL [Concomitant]
  3. ULTRAM [Concomitant]
  4. ASACOL [Concomitant]
  5. PROTONIX [Concomitant]
  6. FOLIC ACID [Concomitant]
  7. LEXAPRO [Concomitant]
  8. TEMAZEPAM [Concomitant]
  9. XANAX [Concomitant]
  10. LIPITOR [Concomitant]
  11. ZANAFLEX [Concomitant]

REACTIONS (1)
  - STEVENS-JOHNSON SYNDROME [None]
